FAERS Safety Report 4579122-0 (Version None)
Quarter: 2005Q1

REPORT INFORMATION
  Report Type: 
  Country: None (occurrence: None)
  Receive Date: 20050121
  Receipt Date: 20040409
  Transmission Date: 20050727
  Serious: Yes (Other)
  Sender: FDA-Public Use
  Company Number: STA-AE-04-MTX-153

PATIENT
  Sex: Female

DRUGS (5)
  1. METHOTREXATE [Suspect]
  2. PLACEBO FOR ETANERCEPT (PLACEBO FOR ETANERCEPT, INJECTION) [Suspect]
     Indication: WEGENER'S GRANULOMATOSIS
  3. AZATHIOPRINE [Suspect]
     Dosage: 75 MG 1X PER 1 DAY,
  4. CYCLOPHOSPHAMIDE [Suspect]
  5. BACTRIN (SULFAMETHOXAZOLE/TRIMETHOPRIM) [Concomitant]

REACTIONS (2)
  - LEUKOPENIA [None]
  - NEUTROPENIA [None]
